FAERS Safety Report 23791340 (Version 1)
Quarter: 2024Q2

REPORT INFORMATION
  Report Type: Spontaneous
  Country: US (occurrence: US)
  Receive Date: 20240428
  Receipt Date: 20240428
  Transmission Date: 20240716
  Serious: No
  Sender: FDA-Public Use
  Company Number: US-Merck Healthcare KGaA-2024021003

PATIENT
  Age: 39 Year
  Sex: Female

DRUGS (2)
  1. MAVENCLAD [Suspect]
     Active Substance: CLADRIBINE
     Indication: Multiple sclerosis
     Dosage: FIRST YEAR FIRST MONTH THERAPY: 2 TABLETS ON DAY 1 AND 1 TABLET ON DAYS 2 TO 5.
     Route: 048
     Dates: start: 20231009
  2. MAVENCLAD [Suspect]
     Active Substance: CLADRIBINE
     Dosage: FIRST YEAR SECOND MONTH THERAPY: 2 TABLETS ON DAY 1 AND 1 TABLET ON DAYS 2 TO 5.
     Route: 048

REACTIONS (3)
  - Influenza [Unknown]
  - Pharyngitis [Unknown]
  - Ear infection [Unknown]
